FAERS Safety Report 7369060-2 (Version None)
Quarter: 2011Q1

REPORT INFORMATION
  Report Type: 
  Country: None (occurrence: None)
  Receive Date: 20110318
  Receipt Date: 20110318
  Transmission Date: 20110831
  Serious: Yes (Life-Threatening, Hospitalization)
  Sender: FDA-Public Use
  Company Number: None

PATIENT
  Age: 19 Year
  Sex: Male

DRUGS (1)
  1. RISPERIDONE [Suspect]
     Indication: PSYCHOTIC DISORDER
     Dosage: 2 MG HS PO
     Route: 048
     Dates: start: 20101130, end: 20101201

REACTIONS (6)
  - SWOLLEN TONGUE [None]
  - HYPERHIDROSIS [None]
  - SPEECH DISORDER [None]
  - DYSPHAGIA [None]
  - RESPIRATION ABNORMAL [None]
  - ANGIOEDEMA [None]
